FAERS Safety Report 17894939 (Version 1)
Quarter: 2020Q2

REPORT INFORMATION
  Report Type: Spontaneous
  Country: RU (occurrence: RU)
  Receive Date: 20200615
  Receipt Date: 20200615
  Transmission Date: 20200714
  Serious: Yes (Other)
  Sender: FDA-Public Use
  Company Number: RU-ROCHE-2620465

PATIENT
  Sex: Female

DRUGS (1)
  1. MABTHERA [Suspect]
     Active Substance: RITUXIMAB
     Indication: B-CELL LYMPHOMA
     Route: 065
     Dates: start: 201411, end: 2017

REACTIONS (2)
  - B-cell lymphoma [Unknown]
  - Nasal obstruction [Unknown]

NARRATIVE: CASE EVENT DATE: 201904
